FAERS Safety Report 26069116 (Version 1)
Quarter: 2025Q4

REPORT INFORMATION
  Report Type: Spontaneous
  Country: EU (occurrence: EU)
  Receive Date: 20251120
  Receipt Date: 20251120
  Transmission Date: 20260118
  Serious: Yes (Other)
  Sender: MYLAN
  Company Number: EU-MYLANLABS-2025M1097788

PATIENT
  Age: 74 Year
  Sex: Male

DRUGS (28)
  1. LENALIDOMIDE [Suspect]
     Active Substance: LENALIDOMIDE
     Indication: Cryoglobulinaemia
     Dosage: 15 MILLIGRAM, QD
     Dates: start: 20240418
  2. LENALIDOMIDE [Suspect]
     Active Substance: LENALIDOMIDE
     Indication: Plasma cell myeloma
     Dosage: 15 MILLIGRAM, QD
     Dates: start: 20240418
  3. LENALIDOMIDE [Suspect]
     Active Substance: LENALIDOMIDE
     Dosage: 15 MILLIGRAM, QD
     Route: 065
     Dates: start: 20240418
  4. LENALIDOMIDE [Suspect]
     Active Substance: LENALIDOMIDE
     Dosage: 15 MILLIGRAM, QD
     Route: 065
     Dates: start: 20240418
  5. LENALIDOMIDE [Suspect]
     Active Substance: LENALIDOMIDE
     Dosage: 10 MILLIGRAM, QD
  6. LENALIDOMIDE [Suspect]
     Active Substance: LENALIDOMIDE
     Dosage: 10 MILLIGRAM, QD
  7. LENALIDOMIDE [Suspect]
     Active Substance: LENALIDOMIDE
     Dosage: 10 MILLIGRAM, QD
     Route: 065
  8. LENALIDOMIDE [Suspect]
     Active Substance: LENALIDOMIDE
     Dosage: 10 MILLIGRAM, QD
     Route: 065
  9. DARATUMUMAB [Suspect]
     Active Substance: DARATUMUMAB
     Indication: Cryoglobulinaemia
     Dosage: UNK
     Dates: start: 20240418, end: 20240508
  10. DARATUMUMAB [Suspect]
     Active Substance: DARATUMUMAB
     Indication: Plasma cell myeloma
     Dosage: UNK
     Route: 065
     Dates: start: 20240418, end: 20240508
  11. DARATUMUMAB [Suspect]
     Active Substance: DARATUMUMAB
     Dosage: UNK
     Route: 065
     Dates: start: 20240418, end: 20240508
  12. DARATUMUMAB [Suspect]
     Active Substance: DARATUMUMAB
     Dosage: UNK
     Dates: start: 20240418, end: 20240508
  13. DEXAMETHASONE [Suspect]
     Active Substance: DEXAMETHASONE
     Indication: Cryoglobulinaemia
     Dosage: UNK
     Dates: start: 20240418, end: 20240508
  14. DEXAMETHASONE [Suspect]
     Active Substance: DEXAMETHASONE
     Indication: Plasma cell myeloma
     Dosage: UNK
     Route: 065
     Dates: start: 20240418, end: 20240508
  15. DEXAMETHASONE [Suspect]
     Active Substance: DEXAMETHASONE
     Dosage: UNK
     Route: 065
     Dates: start: 20240418, end: 20240508
  16. DEXAMETHASONE [Suspect]
     Active Substance: DEXAMETHASONE
     Dosage: UNK
     Dates: start: 20240418, end: 20240508
  17. IBRUTINIB [Concomitant]
     Active Substance: IBRUTINIB
     Indication: Cryoglobulinaemia
     Dosage: UNK
     Dates: start: 20200306, end: 20200722
  18. IBRUTINIB [Concomitant]
     Active Substance: IBRUTINIB
     Dosage: UNK
     Dates: start: 20200306, end: 20200722
  19. IBRUTINIB [Concomitant]
     Active Substance: IBRUTINIB
     Dosage: UNK
     Route: 065
     Dates: start: 20200306, end: 20200722
  20. IBRUTINIB [Concomitant]
     Active Substance: IBRUTINIB
     Dosage: UNK
     Route: 065
     Dates: start: 20200306, end: 20200722
  21. IBRUTINIB [Concomitant]
     Active Substance: IBRUTINIB
     Dosage: UNK,
     Dates: start: 20201109, end: 20240102
  22. IBRUTINIB [Concomitant]
     Active Substance: IBRUTINIB
     Dosage: UNK,
     Dates: start: 20201109, end: 20240102
  23. IBRUTINIB [Concomitant]
     Active Substance: IBRUTINIB
     Dosage: UNK,
     Route: 065
     Dates: start: 20201109, end: 20240102
  24. IBRUTINIB [Concomitant]
     Active Substance: IBRUTINIB
     Dosage: UNK,
     Route: 065
     Dates: start: 20201109, end: 20240102
  25. IBRUTINIB [Concomitant]
     Active Substance: IBRUTINIB
     Dosage: UNK
     Dates: start: 20240701, end: 20241230
  26. IBRUTINIB [Concomitant]
     Active Substance: IBRUTINIB
     Dosage: UNK
     Route: 065
     Dates: start: 20240701, end: 20241230
  27. IBRUTINIB [Concomitant]
     Active Substance: IBRUTINIB
     Dosage: UNK
     Dates: start: 20240701, end: 20241230
  28. IBRUTINIB [Concomitant]
     Active Substance: IBRUTINIB
     Dosage: UNK
     Route: 065
     Dates: start: 20240701, end: 20241230

REACTIONS (2)
  - Condition aggravated [Recovered/Resolved]
  - Cryoglobulinaemia [Recovered/Resolved]
